FAERS Safety Report 8455551-X (Version None)
Quarter: 2012Q2

REPORT INFORMATION
  Report Type: 
  Country: None (occurrence: None)
  Receive Date: 20120621
  Receipt Date: 20120618
  Transmission Date: 20120825
  Serious: Yes (Hospitalization)
  Sender: FDA-Public Use
  Company Number: IT-PFIZER INC-2012124277

PATIENT
  Age: 73 Year
  Sex: Male

DRUGS (9)
  1. ALOXI [Concomitant]
     Dosage: 250 UG, UNK
     Route: 042
  2. OMEPRAZOLE [Concomitant]
     Dosage: 20 MG, UNK
     Route: 048
  3. EPIRUBICIN HYDROCHLORIDE [Suspect]
     Indication: GASTRIC CANCER
     Dosage: 40 ML TOTAL
     Route: 042
     Dates: start: 20120206, end: 20120504
  4. MANNITOL [Concomitant]
     Dosage: 250 ML, UNK
     Route: 042
  5. POTASSIUM CHLORIDE [Concomitant]
     Dosage: 10 MEQ, UNK
     Route: 042
  6. CISPLATIN [Concomitant]
     Dosage: 100 MG, UNK
     Route: 042
     Dates: start: 20120206, end: 20120410
  7. DEXAMETHASONE [Concomitant]
     Dosage: 12 MG, UNK
     Route: 042
  8. MAGNESIUM SULFATE [Concomitant]
     Dosage: 500 MG, UNK
     Route: 042
  9. EMEND [Concomitant]
     Dosage: 125 MG, UNK
     Route: 048

REACTIONS (2)
  - INFUSION SITE ERYTHEMA [None]
  - INJECTION SITE EXTRAVASATION [None]
